FAERS Safety Report 8876165 (Version 1)
Quarter: 2012Q4

REPORT INFORMATION
  Report Type: 
  Country: CN (occurrence: CN)
  Receive Date: 20121030
  Receipt Date: 20121030
  Transmission Date: 20130627
  Serious: Yes (Life-Threatening)
  Sender: FDA-Public Use
  Company Number: CN-BAYER-2012-113824

PATIENT
  Age: 49 Year
  Sex: Male

DRUGS (1)
  1. ULTRAVIST [Suspect]
     Dosage: 60 ml, UNK

REACTIONS (2)
  - Laryngeal oedema [Recovering/Resolving]
  - Sneezing [Recovering/Resolving]
